FAERS Safety Report 16801232 (Version 4)
Quarter: 2019Q4

REPORT INFORMATION
  Report Type: Report from Study
  Country: ID (occurrence: ID)
  Receive Date: 20190912
  Receipt Date: 20191125
  Transmission Date: 20200122
  Serious: Yes (Hospitalization)
  Sender: FDA-Public Use
  Company Number: ID-BAYER-2019-157910

PATIENT
  Age: 52 Year
  Sex: Male

DRUGS (4)
  1. NEXAVAR [Suspect]
     Active Substance: SORAFENIB
     Indication: HEPATOCELLULAR CARCINOMA
     Dosage: 400 MG, BID
     Route: 048
     Dates: start: 20190801, end: 201908
  2. NEXAVAR [Suspect]
     Active Substance: SORAFENIB
     Indication: HEPATOCELLULAR CARCINOMA
     Dosage: 200 BID
     Route: 048
     Dates: start: 2019
  3. NEXAVAR [Suspect]
     Active Substance: SORAFENIB
     Indication: HEPATOCELLULAR CARCINOMA
     Dosage: 200 MG, BID
     Route: 048
     Dates: start: 20190826
  4. NEXAVAR [Suspect]
     Active Substance: SORAFENIB
     Indication: HEPATOCELLULAR CARCINOMA
     Dosage: 400 MG, BID
     Route: 048
     Dates: start: 2019

REACTIONS (24)
  - Skin wound [Recovering/Resolving]
  - Diarrhoea [Recovered/Resolved]
  - Scrotal pain [Recovered/Resolved]
  - Rash [None]
  - Platelet count increased [None]
  - Haemoglobin decreased [None]
  - White blood cell count increased [None]
  - Hyperkeratosis [Recovering/Resolving]
  - Skin burning sensation [Not Recovered/Not Resolved]
  - Gamma-glutamyltransferase increased [None]
  - Blister [Not Recovered/Not Resolved]
  - Blood albumin decreased [None]
  - Penile blister [Not Recovered/Not Resolved]
  - Penile burning sensation [Not Recovered/Not Resolved]
  - Blister [Not Recovered/Not Resolved]
  - Alopecia [Not Recovered/Not Resolved]
  - Off label use [None]
  - Alpha 1 foetoprotein increased [Recovering/Resolving]
  - Blood alkaline phosphatase increased [None]
  - Globulins increased [None]
  - Decreased appetite [Not Recovered/Not Resolved]
  - Purulent discharge [Recovered/Resolved]
  - Pain in extremity [Recovered/Resolved]
  - Skin exfoliation [Recovering/Resolving]

NARRATIVE: CASE EVENT DATE: 201906
